FAERS Safety Report 7675398-1 (Version None)
Quarter: 2011Q3

REPORT INFORMATION
  Report Type: 
  Country: None (occurrence: None)
  Receive Date: 20110810
  Receipt Date: 20110730
  Transmission Date: 20111222
  Serious: Yes (Other)
  Sender: FDA-Public Use
  Company Number: CA-JNJFOC-20110801435

PATIENT
  Sex: Female
  Weight: 89 kg

DRUGS (7)
  1. UNKNOWN MEDICATION [Concomitant]
     Indication: BIPOLAR DISORDER
     Route: 065
  2. BENADRYL [Concomitant]
     Dosage: 25 MG PER 50 ML NORMAL SALINE
     Route: 042
  3. REMICADE [Suspect]
     Route: 042
     Dates: start: 20110513
  4. TYLENOL-500 [Concomitant]
     Indication: PREMEDICATION
     Route: 048
  5. REMICADE [Suspect]
     Indication: CROHN'S DISEASE
     Route: 042
  6. REMICADE [Suspect]
     Route: 042
     Dates: start: 20110730
  7. SOLU-CORTEF [Concomitant]
     Dosage: 100 MG PER 50 ML NORMAL SALINE
     Route: 042

REACTIONS (1)
  - PITUITARY TUMOUR [None]
